FAERS Safety Report 8548571-8 (Version None)
Quarter: 2012Q3

REPORT INFORMATION
  Report Type: 
  Country: None (occurrence: None)
  Receive Date: 20120720
  Receipt Date: 20120720
  Transmission Date: 20120928
  Serious: Yes (Disabling)
  Sender: FDA-Public Use
  Company Number: None

PATIENT
  Age: 89 Year
  Sex: Female
  Weight: 59.8748 kg

DRUGS (4)
  1. SULFAMETHOXAZOLE AND TRIMETHOPRIM [Suspect]
     Indication: SWELLING
     Dosage: 800/160 2/DAY PO
     Route: 048
     Dates: start: 20120705, end: 20120706
  2. SULFAMETHOXAZOLE AND TRIMETHOPRIM [Suspect]
     Indication: STAPHYLOCOCCAL INFECTION
     Dosage: 800/160 2/DAY PO
     Route: 048
     Dates: start: 20120705, end: 20120706
  3. SULFAMETHOXAZOLE AND TRIMETHOPRIM [Suspect]
     Indication: SWELLING
     Dosage: 800/160 2/DAY PO
     Route: 048
     Dates: start: 20120710, end: 20120717
  4. SULFAMETHOXAZOLE AND TRIMETHOPRIM [Suspect]
     Indication: STAPHYLOCOCCAL INFECTION
     Dosage: 800/160 2/DAY PO
     Route: 048
     Dates: start: 20120710, end: 20120717

REACTIONS (17)
  - DIARRHOEA [None]
  - HEADACHE [None]
  - HAEMORRHAGE [None]
  - SWELLING [None]
  - ABDOMINAL PAIN [None]
  - FATIGUE [None]
  - INCONTINENCE [None]
  - VISION BLURRED [None]
  - PYREXIA [None]
  - VOMITING [None]
  - DIZZINESS [None]
  - MUSCULAR WEAKNESS [None]
  - CONTUSION [None]
  - NAUSEA [None]
  - PALLOR [None]
  - TOTAL LUNG CAPACITY DECREASED [None]
  - DECREASED APPETITE [None]
